FAERS Safety Report 9736704 (Version 1)
Quarter: 2013Q4

REPORT INFORMATION
  Report Type: Spontaneous
  Country: US (occurrence: US)
  Receive Date: 20131206
  Receipt Date: 20131206
  Transmission Date: 20140711
  Serious: No
  Sender: FDA-Public Use
  Company Number: US-GILEAD-2009-0023683

PATIENT
  Sex: Female
  Weight: 61.23 kg

DRUGS (15)
  1. LETAIRIS [Suspect]
     Indication: PULMONARY ARTERIAL HYPERTENSION
     Route: 048
     Dates: start: 20071024
  2. BISOPROLOL FUMARATE [Concomitant]
  3. CALCIUM [Concomitant]
  4. VITAMIN C [Concomitant]
  5. HYDROCODONE-APAP [Concomitant]
  6. AMBIEN [Concomitant]
  7. LASIX [Concomitant]
  8. PREMARIN [Concomitant]
  9. COUMADIN [Concomitant]
  10. NORVASC [Concomitant]
  11. NEURONTIN [Concomitant]
  12. DIGOXIN [Concomitant]
  13. CELEXA [Concomitant]
  14. POTASSIUM CHLORIDE [Concomitant]
  15. OXYGEN [Concomitant]

REACTIONS (2)
  - Nasal congestion [Unknown]
  - Secretion discharge [Unknown]
